FAERS Safety Report 24005793 (Version 3)
Quarter: 2024Q3

REPORT INFORMATION
  Report Type: Spontaneous
  Country: US (occurrence: US)
  Receive Date: 20240624
  Receipt Date: 20240726
  Transmission Date: 20241017
  Serious: No
  Sender: SANOFI AVENTIS
  Company Number: US-SA-SAC20240614000885

PATIENT
  Age: 49 Year
  Sex: Male

DRUGS (3)
  1. DUPIXENT [Suspect]
     Active Substance: DUPILUMAB
     Indication: Neurodermatitis
     Dosage: 600 MG, 1X
     Route: 058
     Dates: start: 20240211, end: 20240211
  2. DUPIXENT [Suspect]
     Active Substance: DUPILUMAB
     Indication: Skin swelling
     Dosage: 300 MG, QOW
     Route: 058
     Dates: start: 20240225
  3. DUPIXENT [Suspect]
     Active Substance: DUPILUMAB
     Indication: Pain of skin

REACTIONS (2)
  - Rash [Unknown]
  - Product use in unapproved indication [Unknown]

NARRATIVE: CASE EVENT DATE: 20240401
